FAERS Safety Report 10078404 (Version 1)
Quarter: 2014Q2

REPORT INFORMATION
  Report Type: Spontaneous
  Country: TR (occurrence: TR)
  Receive Date: 20140415
  Receipt Date: 20140415
  Transmission Date: 20141212
  Serious: Yes (Other)
  Sender: FDA-Public Use
  Company Number: TR-009507513-1404TUR007016

PATIENT
  Sex: 0

DRUGS (5)
  1. RIBAVIRIN [Suspect]
     Indication: CHRONIC HEPATITIS C
     Dosage: UNK
     Route: 048
  2. RIBAVIRIN [Suspect]
     Dosage: UNK
     Route: 048
     Dates: start: 20130626, end: 201312
  3. PEGINTERFERON ALFA-2A [Suspect]
     Indication: CHRONIC HEPATITIS C
     Dosage: UNK
  4. PEGINTERFERON ALFA-2A [Suspect]
     Dosage: UNK
     Dates: start: 20130626, end: 201312
  5. TELAPREVIR [Suspect]
     Indication: CHRONIC HEPATITIS C
     Dosage: UNK
     Dates: start: 20130626, end: 201312

REACTIONS (2)
  - Transfusion [Unknown]
  - Anaemia [Unknown]
